FAERS Safety Report 5673067-0 (Version None)
Quarter: 2008Q1

REPORT INFORMATION
  Report Type: 
  Country: None (occurrence: None)
  Receive Date: 20080319
  Receipt Date: 20080114
  Transmission Date: 20080703
  Serious: No
  Sender: FDA-Public Use
  Company Number: US-ASTRAZENECA-2008UW01079

PATIENT

DRUGS (1)
  1. SYMBICORT [Suspect]
     Dosage: TWO PUFFS BID
     Route: 055

REACTIONS (3)
  - DRUG INTERACTION [None]
  - HEART RATE INCREASED [None]
  - TREMOR [None]
